FAERS Safety Report 10259825 (Version 2)
Quarter: 2014Q3

REPORT INFORMATION
  Report Type: Spontaneous
  Country: TR (occurrence: TR)
  Receive Date: 20140625
  Receipt Date: 20140908
  Transmission Date: 20150326
  Serious: Yes (Other)
  Sender: FDA-Public Use
  Company Number: TR-009507513-1406TUR011038

PATIENT
  Age: 24 Year
  Sex: Male

DRUGS (4)
  1. CALCIUM CITRATE (+) CHOLECALCIFEROL [Concomitant]
     Indication: OSTEOPOROSIS
     Route: 048
  2. AZATHIOPRINE. [Concomitant]
     Active Substance: AZATHIOPRINE
     Indication: MYASTHENIA GRAVIS
     Dosage: 100 MG/DAY FOR MYASTHENIA GRAVIS FOR 3 YEARS
  3. DEFLAZACORT [Concomitant]
     Active Substance: DEFLAZACORT
     Indication: MYASTHENIA GRAVIS
     Dosage: 30-40 MG/DAY FOR MYASTHENIA GRAVIS FOR 3 YEARS
  4. FOSAMAX [Suspect]
     Active Substance: ALENDRONATE SODIUM
     Indication: OSTEOPOROSIS
     Dosage: 70 MG, QW
     Route: 048

REACTIONS (1)
  - Myasthenia gravis [Recovered/Resolved]
